FAERS Safety Report 13618016 (Version 4)
Quarter: 2018Q4

REPORT INFORMATION
  Report Type: Spontaneous
  Country: CA (occurrence: CA)
  Receive Date: 20170606
  Receipt Date: 20181219
  Transmission Date: 20190204
  Serious: Yes (Other)
  Sender: FDA-Public Use
  Company Number: CA-SA-2017SA097876

PATIENT
  Age: 65 Year
  Sex: Male

DRUGS (17)
  1. LEFLUNOMIDE. [Suspect]
     Active Substance: LEFLUNOMIDE
     Indication: RHEUMATOID ARTHRITIS
     Dosage: UNK UNK,UNK
     Route: 048
  2. HYDROXYCHLOROQUINE SULFATE. [Suspect]
     Active Substance: HYDROXYCHLOROQUINE SULFATE
     Route: 042
  3. ZOSTAVAX [Concomitant]
     Active Substance: VARICELLA-ZOSTER VIRUS STRAIN OKA/MERCK LIVE ANTIGEN
  4. ENBREL [Suspect]
     Active Substance: ETANERCEPT
     Indication: RHEUMATOID ARTHRITIS
     Dosage: UNK UNK,UNK
     Route: 065
  5. HUMIRA [Suspect]
     Active Substance: ADALIMUMAB
     Indication: RHEUMATOID ARTHRITIS
     Dosage: UNK UNK,UNK
     Route: 058
  6. CORTISONE [Concomitant]
     Active Substance: CORTISONE\HYDROCORTISONE
     Dosage: 10 MG,QD
  7. DICLOFENAC [Concomitant]
     Active Substance: DICLOFENAC
     Dosage: 100 MG, QD
  8. METHOTREXATE. [Concomitant]
     Active Substance: METHOTREXATE
  9. HYDROXYCHLOROQUINE [Suspect]
     Active Substance: HYDROXYCHLOROQUINE
     Indication: RHEUMATOID ARTHRITIS
     Dosage: UNK UNK,UNK
     Route: 048
  10. ORENCIA [Suspect]
     Active Substance: ABATACEPT
     Indication: RHEUMATOID ARTHRITIS
     Dosage: UNK UNK,UNK
     Route: 065
  11. XELJANZ [Concomitant]
     Active Substance: TOFACITINIB CITRATE
  12. SULFASALAZINE. [Suspect]
     Active Substance: SULFASALAZINE
     Dosage: UNK UNK,UNK
     Route: 065
  13. RITUXAN [Suspect]
     Active Substance: RITUXIMAB
     Indication: RHEUMATOID ARTHRITIS
     Dosage: UNK UNK,UNK
     Route: 042
  14. LEFLUNOMIDE. [Suspect]
     Active Substance: LEFLUNOMIDE
  15. REMICADE [Suspect]
     Active Substance: INFLIXIMAB
     Indication: RHEUMATOID ARTHRITIS
     Dosage: UNK UNK,UNK
     Route: 042
  16. DESOXIMETASONE. [Concomitant]
     Active Substance: DESOXIMETASONE
     Dosage: 10 MG, QD
  17. VOLTAREN [DICLOFENAC] [Concomitant]
     Active Substance: DICLOFENAC SODIUM
     Dosage: 100 MG,QD

REACTIONS (6)
  - Drug ineffective [Unknown]
  - Alopecia [Unknown]
  - Drug tolerance decreased [Unknown]
  - Drug intolerance [Unknown]
  - Arthritis [Unknown]
  - Lymphoma [Unknown]
